FAERS Safety Report 14227627 (Version 3)
Quarter: 2018Q1

REPORT INFORMATION
  Report Type: Report from Study
  Country: FR (occurrence: FR)
  Receive Date: 20171127
  Receipt Date: 20180121
  Transmission Date: 20180508
  Serious: Yes (Death, Hospitalization)
  Sender: FDA-Public Use
  Company Number: PHHY2017FR152469

PATIENT
  Age: 62 Year
  Sex: Male

DRUGS (1)
  1. ZARZIO [Suspect]
     Active Substance: FILGRASTIM
     Indication: PRODUCT USED FOR UNKNOWN INDICATION
     Dosage: UNK
     Route: 065
     Dates: start: 20171009

REACTIONS (5)
  - Livedo reticularis [Fatal]
  - Dyspnoea [Fatal]
  - Diarrhoea [Fatal]
  - Coma [Fatal]
  - Septic shock [Fatal]

NARRATIVE: CASE EVENT DATE: 20171013
